FAERS Safety Report 13020902 (Version 1)
Quarter: 2016Q4

REPORT INFORMATION
  Report Type: Report from Study
  Country: US (occurrence: US)
  Receive Date: 20161212
  Receipt Date: 20161212
  Transmission Date: 20170207
  Serious: No
  Sender: FDA-Public Use
  Company Number: GXBR2016US003291

PATIENT
  Sex: Female
  Weight: 102.4 kg

DRUGS (1)
  1. OMNITROPE [Suspect]
     Active Substance: SOMATROPIN
     Indication: HYPOPITUITARISM
     Dosage: 0.2 MG, QD
     Route: 058
     Dates: start: 20160130, end: 20161017

REACTIONS (3)
  - Nausea [Unknown]
  - Hypersensitivity [Unknown]
  - Gastrointestinal disorder [Unknown]
